FAERS Safety Report 7742961-9 (Version None)
Quarter: 2011Q3

REPORT INFORMATION
  Report Type: 
  Country: None (occurrence: None)
  Receive Date: 20110912
  Receipt Date: 20110902
  Transmission Date: 20111222
  Serious: Yes (Other)
  Sender: FDA-Public Use
  Company Number: US-ROCHE-655712

PATIENT
  Sex: Female
  Weight: 62.1 kg

DRUGS (3)
  1. ENTEX CAP [Concomitant]
     Indication: ILL-DEFINED DISORDER
     Dates: start: 19980211
  2. ACCUTANE [Suspect]
     Indication: ACNE
     Dosage: STRENGTH: 40 MG AND 20 MG, DOSE WAS HELD IN MARCH 1998 FOR TWO DAYS
     Route: 048
     Dates: start: 19980129, end: 19980615
  3. ORTHO TRI-CYCLEN [Concomitant]
     Dates: start: 19971101, end: 19980619

REACTIONS (21)
  - SKIN LESION [None]
  - PROCTOCOLITIS [None]
  - CHAPPED LIPS [None]
  - CHEST PAIN [None]
  - COLITIS ULCERATIVE [None]
  - ARTHRALGIA [None]
  - DRY SKIN [None]
  - CONJUNCTIVITIS INFECTIVE [None]
  - DEPRESSION [None]
  - BLOOD CHOLESTEROL INCREASED [None]
  - RASH [None]
  - NECK PAIN [None]
  - GINGIVAL PAIN [None]
  - PAIN IN EXTREMITY [None]
  - VIRAL INFECTION [None]
  - INFLAMMATORY BOWEL DISEASE [None]
  - CHEILITIS [None]
  - BLOOD TRIGLYCERIDES INCREASED [None]
  - LUMBAR SPINAL STENOSIS [None]
  - MELANOCYTIC NAEVUS [None]
  - FATIGUE [None]
